FAERS Safety Report 16132931 (Version 1)
Quarter: 2019Q2

REPORT INFORMATION
  Report Type: Spontaneous
  Country: US (occurrence: US)
  Receive Date: 20190328
  Receipt Date: 20190328
  Transmission Date: 20190711
  Serious: Yes (Other)
  Sender: FDA-Public Use
  Company Number: None

PATIENT
  Age: 71 Year
  Sex: Male

DRUGS (1)
  1. CYCLOBENZAPRINE 10MG TABLET [Suspect]
     Active Substance: CYCLOBENZAPRINE
     Indication: INSOMNIA

REACTIONS (2)
  - Dizziness [None]
  - Hot flush [None]

NARRATIVE: CASE EVENT DATE: 20190301
